FAERS Safety Report 4938246-6 (Version None)
Quarter: 2006Q1

REPORT INFORMATION
  Report Type: 
  Country: None (occurrence: None)
  Receive Date: 20060309
  Receipt Date: 20060130
  Transmission Date: 20060701
  Serious: Yes (Other)
  Sender: FDA-Public Use
  Company Number: US-ROCHE-434455

PATIENT
  Age: 59 Year
  Sex: Female
  Weight: 63.5 kg

DRUGS (3)
  1. BONIVA [Suspect]
     Indication: DRUG USE FOR UNKNOWN INDICATION
     Dosage: DRUG STOPPED AFTER FIRST DOSE
     Route: 048
     Dates: start: 20050615, end: 20050615
  2. SYNTHROID [Concomitant]
     Dosage: REPORTED AS SYNTHROID 88.
  3. TOPROL-XL [Concomitant]

REACTIONS (1)
  - OESOPHAGEAL SPASM [None]
